FAERS Safety Report 5511199-8 (Version None)
Quarter: 2007Q4

REPORT INFORMATION
  Report Type: 
  Country: None (occurrence: None)
  Receive Date: 20071109
  Receipt Date: 20071031
  Transmission Date: 20080405
  Serious: No
  Sender: FDA-Public Use
  Company Number: US-ELI_LILLY_AND_COMPANY-US200710007658

PATIENT
  Sex: Male

DRUGS (5)
  1. CIALIS [Suspect]
     Indication: RADICAL PROSTATECTOMY
     Dosage: 20 MG, 3/W
     Route: 048
     Dates: start: 20070101, end: 20070901
  2. LOTREL [Concomitant]
     Indication: HYPERTENSION
     Dosage: UNK, DAILY (1/D)
  3. HYDROCHLOROTHIAZIDE [Concomitant]
     Indication: HYPERTENSION
     Dosage: 25 MG, DAILY (1/D)
  4. CALCIUM [Concomitant]
     Indication: HORMONE THERAPY
  5. VITAMINS NOS [Concomitant]

REACTIONS (1)
  - PHOTOPHOBIA [None]
